FAERS Safety Report 14476942 (Version 1)
Quarter: 2018Q1

REPORT INFORMATION
  Report Type: Report from Study
  Country: US (occurrence: US)
  Receive Date: 20180201
  Receipt Date: 20180201
  Transmission Date: 20180509
  Serious: No
  Sender: FDA-Public Use
  Company Number: US-EXELIXIS-CABO-17008878

PATIENT
  Sex: Female
  Weight: 58.5 kg

DRUGS (12)
  1. TYLENOL [Concomitant]
     Active Substance: ACETAMINOPHEN
  2. ONDANSETRON [Concomitant]
     Active Substance: ONDANSETRON
  3. ZANTAC [Concomitant]
     Active Substance: RANITIDINE HYDROCHLORIDE
  4. LORAZEPAM. [Concomitant]
     Active Substance: LORAZEPAM
  5. AMLODIPINE [Concomitant]
     Active Substance: AMLODIPINE BESYLATE
  6. LEVOTHYROXINE. [Concomitant]
     Active Substance: LEVOTHYROXINE
  7. OXYCODONE [Concomitant]
     Active Substance: OXYCODONE
  8. MORPHINE [Concomitant]
     Active Substance: MORPHINE
  9. CABOMETYX [Suspect]
     Active Substance: CABOZANTINIB S-MALATE
     Indication: RENAL CELL CARCINOMA
     Dosage: 40 MG, QD
     Route: 048
     Dates: start: 20160111
  10. LIDOCAINE. [Concomitant]
     Active Substance: LIDOCAINE
  11. CLOBETASOL [Concomitant]
     Active Substance: CLOBETASOL
  12. ENOXAPARIN [Concomitant]
     Active Substance: ENOXAPARIN

REACTIONS (6)
  - Arthralgia [Unknown]
  - Diarrhoea [Recovered/Resolved]
  - Nausea [Unknown]
  - Oedema peripheral [Unknown]
  - Bone pain [Unknown]
  - Fatigue [Unknown]
